FAERS Safety Report 15544959 (Version 1)
Quarter: 2018Q4

REPORT INFORMATION
  Report Type: Spontaneous
  Country: NL (occurrence: NL)
  Receive Date: 20181024
  Receipt Date: 20181024
  Transmission Date: 20190205
  Serious: Yes (Hospitalization)
  Sender: FDA-Public Use
  Company Number: NL-009507513-1810NLD007830

PATIENT
  Age: 77 Year
  Sex: Female
  Weight: 80 kg

DRUGS (6)
  1. EZETROL [Suspect]
     Active Substance: EZETIMIBE
     Indication: HYPERLIPIDAEMIA
     Dosage: 1 TIME PER DAY 10 MG BECAUSE OF HYPERLIPIDEMIA
     Route: 048
     Dates: start: 200404, end: 20040914
  2. GEMFIBROZIL. [Interacting]
     Active Substance: GEMFIBROZIL
     Dosage: 1200MG
     Route: 048
     Dates: start: 2002, end: 20040914
  3. DICLOFENAC POTASSIUM. [Concomitant]
     Active Substance: DICLOFENAC POTASSIUM
     Indication: PAIN
     Dosage: 3 TIMES A DAY 25 MG BECAUSE OF PAIN COMPLAINTS
     Route: 048
     Dates: end: 20040914
  4. ATENOLOL. [Concomitant]
     Active Substance: ATENOLOL
     Indication: HYPERTENSION
     Dosage: 2 TIMES PER DAY 50 MG BECAUSE OF HYPERTENSION
     Route: 048
     Dates: start: 1996
  5. LIPITOR [Suspect]
     Active Substance: ATORVASTATIN CALCIUM
     Dosage: 1DD40MG
     Route: 048
     Dates: start: 1996, end: 20040914
  6. AMLODIPINE [Concomitant]
     Active Substance: AMLODIPINE BESYLATE
     Dosage: 1 TIME PER DAY 5 MG BECAUSE OF HYPERTENSION
     Route: 048
     Dates: start: 2003

REACTIONS (3)
  - Rhabdomyolysis [Recovering/Resolving]
  - Hepatic function abnormal [Unknown]
  - Renal failure [Unknown]

NARRATIVE: CASE EVENT DATE: 20040901
